FAERS Safety Report 7573616-1 (Version None)
Quarter: 2011Q2

REPORT INFORMATION
  Report Type: 
  Country: None (occurrence: None)
  Receive Date: 20110627
  Receipt Date: 20110621
  Transmission Date: 20111010
  Serious: Yes (Death)
  Sender: FDA-Public Use
  Company Number: US-PFIZER INC-US-WYE-H07562009

PATIENT
  Age: 26 Year
  Sex: Male

DRUGS (5)
  1. PROMETHAZINE HCL [Suspect]
     Dosage: UNKNOWN
     Route: 065
     Dates: end: 20070101
  2. TRAZODONE HCL [Suspect]
     Dosage: UNKNOWN
     Route: 065
     Dates: end: 20070101
  3. TRAMADOL HCL [Suspect]
     Dosage: UNKNOWN
     Route: 065
     Dates: end: 20070101
  4. LOPERAMIDE [Suspect]
     Dosage: UNKNOWN
     Route: 065
     Dates: end: 20070101
  5. FENTANYL [Suspect]
     Dosage: UNKNOWN
     Route: 065
     Dates: end: 20070101

REACTIONS (1)
  - DEATH [None]
